FAERS Safety Report 12609351 (Version 2)
Quarter: 2016Q3

REPORT INFORMATION
  Report Type: Report from Study
  Country: US (occurrence: US)
  Receive Date: 20160801
  Receipt Date: 20160810
  Transmission Date: 20161109
  Serious: Yes (Other)
  Sender: FDA-Public Use
  Company Number: US-MALLINCKRODT-T201603251

PATIENT
  Age: 66 Year
  Sex: Female

DRUGS (1)
  1. REPOSITORY CORTICOTROPIN INJECTION [Suspect]
     Active Substance: CORTICOTROPIN
     Indication: PSORIATIC ARTHROPATHY
     Dosage: 80 UNITS TWICE WEEKLY
     Route: 058
     Dates: start: 20150220

REACTIONS (6)
  - Loss of consciousness [Recovering/Resolving]
  - Blood potassium decreased [Recovering/Resolving]
  - Fall [Unknown]
  - Hypotension [Recovering/Resolving]
  - Head injury [Recovering/Resolving]
  - Concussion [Unknown]

NARRATIVE: CASE EVENT DATE: 20160201
